FAERS Safety Report 24415141 (Version 1)
Quarter: 2024Q4

REPORT INFORMATION
  Report Type: Spontaneous
  Country: ES (occurrence: ES)
  Receive Date: 20241009
  Receipt Date: 20241009
  Transmission Date: 20250114
  Serious: Yes (Other)
  Sender: BAUSCH AND LOMB
  Company Number: ES-BAUSCH-BL-2024-014739

PATIENT
  Age: 70 Year
  Sex: Male

DRUGS (2)
  1. PRIMIDONE [Suspect]
     Active Substance: PRIMIDONE
     Indication: Essential tremor
     Route: 065
  2. MYSOLINE [Concomitant]
     Active Substance: PRIMIDONE
     Indication: Essential tremor
     Route: 065

REACTIONS (3)
  - Encephalopathy [Recovered/Resolved]
  - Dupuytren^s contracture [Recovered/Resolved]
  - Complex regional pain syndrome [Recovered/Resolved]
